FAERS Safety Report 6616098-6 (Version None)
Quarter: 2010Q1

REPORT INFORMATION
  Report Type: 
  Country: None (occurrence: None)
  Receive Date: 20100305
  Receipt Date: 20100226
  Transmission Date: 20100710
  Serious: Yes (Other)
  Sender: FDA-Public Use
  Company Number: JP-MERCK-1003USA00313

PATIENT
  Age: 58 Year
  Sex: Female

DRUGS (6)
  1. FOSAMAX [Suspect]
     Route: 048
     Dates: start: 20100213, end: 20100220
  2. BACTRAMIN [Concomitant]
     Route: 048
     Dates: start: 20100213
  3. PEPCID RPD [Concomitant]
     Route: 048
     Dates: start: 20100208
  4. PREDNISOLON [Concomitant]
     Route: 048
     Dates: start: 20100213
  5. COMELIAN [Concomitant]
     Route: 048
     Dates: start: 20100213
  6. MUCOSTA [Concomitant]
     Route: 048
     Dates: start: 20100208

REACTIONS (1)
  - DRUG ERUPTION [None]
